FAERS Safety Report 8300362-9 (Version None)
Quarter: 2012Q2

REPORT INFORMATION
  Report Type: 
  Country: None (occurrence: None)
  Receive Date: 20120420
  Receipt Date: 20120411
  Transmission Date: 20120825
  Serious: Yes (Hospitalization)
  Sender: FDA-Public Use
  Company Number: GB-PERRIGO-12GB003077

PATIENT
  Age: 75 Year
  Sex: Female

DRUGS (14)
  1. EXEMESTANE [Concomitant]
     Indication: BREAST CANCER
     Dosage: 25 MG, QD
     Route: 048
  2. GAVISCON [Concomitant]
     Indication: DYSPEPSIA
     Dosage: 10 ML, TID
     Route: 048
  3. ACETAMINOPHEN AND CODEINE PHOSPHATE [Concomitant]
     Indication: PAIN
     Dosage: 2 DF, QID
     Route: 048
  4. LAXIDO [Concomitant]
     Indication: CONSTIPATION
     Dosage: UNK
     Route: 048
  5. TRIMETHOPRIM [Concomitant]
     Indication: INFECTION
     Dosage: 200 MG, BID
     Route: 048
     Dates: start: 20120222, end: 20120225
  6. LACTULOSE [Concomitant]
     Indication: CONSTIPATION
     Dosage: 15 ML, BID
     Route: 048
  7. MS CONTIN [Concomitant]
     Indication: PAIN
     Dosage: 20 MG, BID
     Route: 048
  8. ORAMORPH SR [Concomitant]
     Indication: BREAKTHROUGH PAIN
     Dosage: 5 ML, UNK
     Route: 048
  9. NAPROXEN [Suspect]
     Indication: PRODUCT USED FOR UNKNOWN INDICATION
     Dosage: 250 MG, BID
     Route: 048
     Dates: end: 20120307
  10. DOMPERIDONE [Concomitant]
     Indication: NAUSEA
     Dosage: 10 MG, TID
     Route: 048
  11. ADCAL D3 [Concomitant]
     Indication: PRODUCT USED FOR UNKNOWN INDICATION
     Dosage: 1 DF, BID
     Route: 048
     Dates: end: 20120307
  12. OMEPRAZOLE [Concomitant]
     Indication: PRODUCT USED FOR UNKNOWN INDICATION
     Dosage: 20 MG, QD
     Route: 048
  13. FERROUS SULFATE TAB [Concomitant]
     Indication: ANAEMIA
     Dosage: 200 MG, TID
     Route: 048
  14. DEXAMETHASONE [Concomitant]
     Indication: PRODUCT USED FOR UNKNOWN INDICATION
     Dosage: 2 MG, QD
     Route: 048

REACTIONS (2)
  - HAEMOGLOBIN DECREASED [None]
  - GASTROINTESTINAL HAEMORRHAGE [None]
